FAERS Safety Report 9473380 (Version 1)
Quarter: 2013Q3

REPORT INFORMATION
  Report Type: Spontaneous
  Country: US (occurrence: US)
  Receive Date: 20130823
  Receipt Date: 20130823
  Transmission Date: 20140515
  Serious: Yes (Hospitalization)
  Sender: FDA-Public Use
  Company Number: US-BRISTOL-MYERS SQUIBB COMPANY-18941385

PATIENT
  Age: 59 Year
  Sex: Female

DRUGS (3)
  1. DASATINIB [Suspect]
     Indication: ACUTE MYELOID LEUKAEMIA
  2. HYDROXYUREA [Suspect]
     Indication: ACUTE MYELOID LEUKAEMIA
  3. ICLUSIG [Suspect]
     Indication: ACUTE MYELOID LEUKAEMIA
     Route: 048
     Dates: start: 20130418

REACTIONS (1)
  - Malignant neoplasm progression [Not Recovered/Not Resolved]
